FAERS Safety Report 8198837-9 (Version None)
Quarter: 2012Q1

REPORT INFORMATION
  Report Type: 
  Country: None (occurrence: None)
  Receive Date: 20120309
  Receipt Date: 20120216
  Transmission Date: 20120608
  Serious: No
  Sender: FDA-Public Use
  Company Number: US-AMGEN-USASP2011025243

PATIENT
  Sex: Female

DRUGS (6)
  1. LISINOPRIL AND HYDROCHLOROTHIAZIDE [Concomitant]
  2. LEVOXYL [Concomitant]
     Dosage: UNK UNK, QD
  3. LOVASTATIN [Concomitant]
     Dosage: 1 MG, QD
  4. OMEPRAZOLE [Concomitant]
     Dosage: UNK
  5. PROLIA [Suspect]
     Indication: OSTEOPOROSIS POSTMENOPAUSAL
     Dosage: UNK UNK, Q6MO
  6. VITAMIN D [Concomitant]
     Dosage: 1 IU, QMO

REACTIONS (2)
  - BACK PAIN [None]
  - ARTHRALGIA [None]
